FAERS Safety Report 5118280-6 (Version None)
Quarter: 2006Q4

REPORT INFORMATION
  Report Type: 
  Country: None (occurrence: None)
  Receive Date: 20061002
  Receipt Date: 20060808
  Transmission Date: 20070319
  Serious: No
  Sender: FDA-Public Use
  Company Number: US-BRISTOL-MYERS SQUIBB COMPANY-13469119

PATIENT
  Age: 34 Year
  Sex: Female
  Weight: 48 kg

DRUGS (8)
  1. ORENCIA [Suspect]
     Indication: RHEUMATOID ARTHRITIS
     Route: 042
     Dates: start: 20060101
  2. WELLBUTRIN XL [Concomitant]
  3. TRAZODONE HCL [Concomitant]
  4. FOSAMAX [Concomitant]
  5. FLONASE [Concomitant]
  6. REBIF [Concomitant]
     Route: 042
  7. LORTAB [Concomitant]
  8. PHENERGAN [Concomitant]

REACTIONS (2)
  - NAUSEA [None]
  - VOMITING [None]
